FAERS Safety Report 11121762 (Version 1)
Quarter: 2015Q2

REPORT INFORMATION
  Report Type: Spontaneous
  Country: IN (occurrence: IN)
  Receive Date: 20150519
  Receipt Date: 20150519
  Transmission Date: 20150821
  Serious: Yes (Death, Hospitalization)
  Sender: FDA-Public Use
  Company Number: IN-WATSON-2015-09708

PATIENT
  Age: 46 Year
  Sex: Male

DRUGS (2)
  1. ETOPOSIDE (UNKNOWN) [Suspect]
     Active Substance: ETOPOSIDE
     Indication: TESTICULAR NEOPLASM
     Dosage: 100 MG/M2, CYCLICAL, 4 CYCLES
     Route: 065
  2. CISPLATIN. [Suspect]
     Active Substance: CISPLATIN
     Indication: TESTIS CANCER
     Dosage: 20 MG/M2, CYCLICAL, 4 CYCLES
     Route: 065

REACTIONS (3)
  - Acute coronary syndrome [Fatal]
  - Acute promyelocytic leukaemia [Fatal]
  - Pulmonary oedema [Fatal]
